FAERS Safety Report 7492769-7 (Version None)
Quarter: 2011Q2

REPORT INFORMATION
  Report Type: 
  Country: None (occurrence: None)
  Receive Date: 20110519
  Receipt Date: 20110513
  Transmission Date: 20111010
  Serious: Yes (Death, Other)
  Sender: FDA-Public Use
  Company Number: US-BAYER-2011-042294

PATIENT
  Sex: Male

DRUGS (6)
  1. MAGNEVIST [Suspect]
     Indication: ANGIOGRAM
  2. OMNISCAN [Suspect]
     Indication: ANGIOGRAM
  3. OPTIMARK [Suspect]
     Indication: NUCLEAR MAGNETIC RESONANCE IMAGING
  4. OPTIMARK [Suspect]
     Indication: ANGIOGRAM
  5. OMNISCAN [Suspect]
     Indication: NUCLEAR MAGNETIC RESONANCE IMAGING
  6. MAGNEVIST [Suspect]
     Indication: NUCLEAR MAGNETIC RESONANCE IMAGING

REACTIONS (1)
  - NEPHROGENIC SYSTEMIC FIBROSIS [None]
